FAERS Safety Report 15098455 (Version 1)
Quarter: 2018Q2

REPORT INFORMATION
  Report Type: Spontaneous
  Country: US (occurrence: US)
  Receive Date: 20180611
  Receipt Date: 20180611
  Transmission Date: 20180711
  Serious: No
  Sender: FDA-Public Use
  Company Number: None

PATIENT

DRUGS (2)
  1. SEROQUEL [Suspect]
     Active Substance: QUETIAPINE FUMARATE
  2. QUETIAPINE (50MG) [Suspect]
     Active Substance: QUETIAPINE FUMARATE

REACTIONS (3)
  - Gait inability [None]
  - Dizziness [None]
  - Impaired driving ability [None]
